FAERS Safety Report 14914034 (Version 2)
Quarter: 2018Q2

REPORT INFORMATION
  Report Type: Report from Study
  Country: US (occurrence: US)
  Receive Date: 20180518
  Receipt Date: 20180521
  Transmission Date: 20180711
  Serious: Yes (Hospitalization)
  Sender: FDA-Public Use
  Company Number: US-JNJFOC-20180520754

PATIENT
  Age: 22 Year
  Sex: Female
  Weight: 52.16 kg

DRUGS (4)
  1. SIMPONI [Concomitant]
     Active Substance: GOLIMUMAB
     Route: 058
     Dates: start: 20150710, end: 20171117
  2. PREDNISONE. [Concomitant]
     Active Substance: PREDNISONE
     Route: 065
  3. STELARA [Concomitant]
     Active Substance: USTEKINUMAB
     Route: 058
     Dates: start: 20171218
  4. REMICADE [Suspect]
     Active Substance: INFLIXIMAB
     Indication: INFLAMMATORY BOWEL DISEASE
     Route: 042
     Dates: start: 20050531

REACTIONS (1)
  - Crohn^s disease [Recovered/Resolved]

NARRATIVE: CASE EVENT DATE: 20171226
